FAERS Safety Report 4946716-X (Version None)
Quarter: 2006Q1

REPORT INFORMATION
  Report Type: 
  Country: None (occurrence: None)
  Receive Date: 20060317
  Receipt Date: 20050920
  Transmission Date: 20060701
  Serious: Yes (Hospitalization, Other)
  Sender: FDA-Public Use
  Company Number: US-MERCK-0509USA03015

PATIENT
  Age: 44 Year
  Sex: Female
  Weight: 109 kg

DRUGS (24)
  1. VIOXX [Suspect]
     Indication: ARTHRALGIA
     Route: 048
     Dates: start: 20010401
  2. VIOXX [Suspect]
     Indication: KNEE OPERATION
     Route: 048
     Dates: start: 20010401
  3. HYDROCODONE BITARTRATE + ACETAMINOPHEN [Concomitant]
     Route: 065
  4. COUMADIN [Concomitant]
     Route: 065
  5. IMITREX [Concomitant]
     Route: 065
  6. ENDOCET [Concomitant]
     Route: 065
  7. DIFLUCAN [Concomitant]
     Route: 065
  8. AMOXICILLIN [Concomitant]
     Route: 065
  9. ZOMIG [Concomitant]
     Route: 065
  10. BUTALBITAL [Concomitant]
     Route: 065
  11. VENTOLIN [Concomitant]
     Route: 065
  12. STADOL [Concomitant]
     Route: 065
  13. NALFON [Concomitant]
     Route: 065
  14. DEPAKOTE [Concomitant]
     Route: 065
  15. SOMA [Concomitant]
     Route: 065
  16. XANAX [Concomitant]
     Route: 065
  17. PHENERGAN [Concomitant]
     Route: 065
  18. SONATA [Concomitant]
     Route: 065
  19. ROBAXIN [Concomitant]
     Route: 065
  20. ANTIVERT [Concomitant]
     Route: 065
  21. TALWIN [Concomitant]
     Route: 065
  22. IMODIUM [Concomitant]
     Route: 065
  23. VALIUM [Concomitant]
     Route: 065
  24. ATARAX [Concomitant]
     Route: 065

REACTIONS (13)
  - ACCIDENTAL OVERDOSE [None]
  - AORTIC ANEURYSM [None]
  - ARTHROPATHY [None]
  - CEREBROVASCULAR ACCIDENT [None]
  - CHRONIC OBSTRUCTIVE PULMONARY DISEASE [None]
  - HEART VALVE REPLACEMENT [None]
  - INCOHERENT [None]
  - MENTAL STATUS CHANGES [None]
  - MYOCARDIAL ISCHAEMIA [None]
  - NON-CARDIAC CHEST PAIN [None]
  - SEDATION [None]
  - SINUS DISORDER [None]
  - THROMBOSIS [None]
